FAERS Safety Report 9579913 (Version 1)
Quarter: 2013Q3

REPORT INFORMATION
  Report Type: Spontaneous
  Country: US (occurrence: None)
  Receive Date: 20130930
  Receipt Date: 20130930
  Transmission Date: 20140515
  Serious: Yes (Other)
  Sender: FDA-Public Use
  Company Number: None

PATIENT
  Age: 65 Year
  Sex: 0
  Weight: 108.86 kg

DRUGS (1)
  1. LAMITROGINE [Suspect]
     Indication: DEPRESSION
     Route: 048
     Dates: start: 20130601, end: 20130913

REACTIONS (7)
  - Drug ineffective [None]
  - Impaired work ability [None]
  - Anxiety [None]
  - Fatigue [None]
  - Disturbance in attention [None]
  - Amnesia [None]
  - Product substitution issue [None]
